FAERS Safety Report 5792337-9 (Version None)
Quarter: 2008Q2

REPORT INFORMATION
  Report Type: 
  Country: None (occurrence: None)
  Receive Date: 20080625
  Receipt Date: 20080424
  Transmission Date: 20081010
  Serious: Yes (Other)
  Sender: FDA-Public Use
  Company Number: US-WYE-H03792908

PATIENT
  Age: 64 Year
  Sex: Male
  Weight: 115.32 kg

DRUGS (1)
  1. TORISEL [Suspect]
     Indication: RENAL CELL CARCINOMA
     Dosage: 25 MG 1X PER 1 WK, INTRAVENOUS
     Route: 042
     Dates: start: 20080403, end: 20080424

REACTIONS (2)
  - BLOOD CREATININE INCREASED [None]
  - RASH [None]
